FAERS Safety Report 9746008 (Version 1)
Quarter: 2013Q4

REPORT INFORMATION
  Report Type: Report from Study
  Country: AR (occurrence: AR)
  Receive Date: 20131211
  Receipt Date: 20131211
  Transmission Date: 20140711
  Serious: Yes (Hospitalization, Other)
  Sender: FDA-Public Use
  Company Number: PHHY2013AR144978

PATIENT
  Age: 63 Year
  Sex: Male

DRUGS (2)
  1. DIOVAN [Suspect]
     Indication: HYPERTENSION
     Dosage: 1 DF (320MG), A DAY
     Route: 048
     Dates: start: 201311, end: 201312
  2. DIOVAN [Suspect]
     Dosage: 1 DF (80MG), A DAY
     Route: 048

REACTIONS (5)
  - Convulsion [Unknown]
  - Hypertension [Unknown]
  - Limb discomfort [Unknown]
  - General physical health deterioration [Not Recovered/Not Resolved]
  - Nervous system disorder [Unknown]
